FAERS Safety Report 6648030-3 (Version None)
Quarter: 2010Q1

REPORT INFORMATION
  Report Type: 
  Country: None (occurrence: None)
  Receive Date: 20100324
  Receipt Date: 20100317
  Transmission Date: 20100710
  Serious: Yes (Hospitalization, Other)
  Sender: FDA-Public Use
  Company Number: US-ELI_LILLY_AND_COMPANY-US201003004800

PATIENT
  Sex: Male

DRUGS (5)
  1. HUMULIN R [Suspect]
     Indication: DIABETES MELLITUS
     Dosage: 20 U, OTHER
     Dates: start: 20030101
  2. HUMULIN R [Suspect]
     Dosage: 5 U, AS NEEDED
     Dates: start: 20030101
  3. HUMULIN 70/30 [Suspect]
     Indication: DIABETES MELLITUS
     Dosage: 40 U, EACH MORNING
     Dates: start: 20030101
  4. HUMULIN 70/30 [Suspect]
     Dosage: 30 U, EACH MORNING
  5. LANTUS [Concomitant]
     Dosage: 40 U, EACH MORNING

REACTIONS (13)
  - BLOOD CREATININE INCREASED [None]
  - BLOOD GLUCOSE INCREASED [None]
  - CARDIAC FAILURE CONGESTIVE [None]
  - DRUG INEFFECTIVE [None]
  - EXPIRED DRUG ADMINISTERED [None]
  - GLYCOSYLATED HAEMOGLOBIN INCREASED [None]
  - INSULIN RESISTANCE [None]
  - PNEUMONIA [None]
  - PRODUCT QUALITY ISSUE [None]
  - PROTEINURIA [None]
  - RENAL DISORDER [None]
  - RENAL TRANSPLANT [None]
  - SEPSIS [None]
